FAERS Safety Report 21694655 (Version 1)
Quarter: 2022Q4

REPORT INFORMATION
  Report Type: Spontaneous
  Country: GB (occurrence: GB)
  Receive Date: 20221207
  Receipt Date: 20221207
  Transmission Date: 20230113
  Serious: Yes (Hospitalization, Other)
  Sender: FDA-Public Use
  Company Number: GB-ANTARES PHARMA, INC.-2022-LIT-TE-0003

PATIENT

DRUGS (2)
  1. TESTOSTERONE ENANTHATE [Suspect]
     Active Substance: TESTOSTERONE ENANTHATE
     Indication: Product used for unknown indication
     Dosage: 400 MG (TITER), Q24H
     Route: 030
  2. TESTOSTERONE UNDECANOATE [Suspect]
     Active Substance: TESTOSTERONE UNDECANOATE
     Indication: Product used for unknown indication

REACTIONS (9)
  - Generalised tonic-clonic seizure [Unknown]
  - Drug abuse [Unknown]
  - Hyperpyrexia [Unknown]
  - Rhabdomyolysis [Recovered/Resolved]
  - Acute kidney injury [Recovered/Resolved]
  - Acute respiratory distress syndrome [Unknown]
  - Mouth haemorrhage [Unknown]
  - Metabolic acidosis [Unknown]
  - Hypertransaminasaemia [Recovered/Resolved]
